FAERS Safety Report 18486221 (Version 1)
Quarter: 2020Q4

REPORT INFORMATION
  Report Type: Spontaneous
  Country: GB (occurrence: GB)
  Receive Date: 20201110
  Receipt Date: 20201110
  Transmission Date: 20210114
  Serious: Yes (Disabling)
  Sender: FDA-Public Use
  Company Number: None

PATIENT
  Age: 58 Year
  Sex: Male
  Weight: 69.75 kg

DRUGS (7)
  1. RAMIPRIL. [Concomitant]
     Active Substance: RAMIPRIL
  2. LANSOPRAZOLE. [Concomitant]
     Active Substance: LANSOPRAZOLE
  3. ISOSORBIDE MONONITRATE. [Concomitant]
     Active Substance: ISOSORBIDE MONONITRATE
  4. BISOPROLOL [Concomitant]
     Active Substance: BISOPROLOL
  5. BRINZOLAMIDE 10MG/ML EYE DROP SUSPENSION [Suspect]
     Active Substance: BRINZOLAMIDE
     Indication: CHORIORETINOPATHY
     Dosage: ?          QUANTITY:1 DROP(S);?
     Route: 047
     Dates: start: 20191031
  6. ATORVASTATIN [Concomitant]
     Active Substance: ATORVASTATIN
  7. ASPIRIN. [Concomitant]
     Active Substance: ASPIRIN

REACTIONS (1)
  - Parosmia [None]

NARRATIVE: CASE EVENT DATE: 20201110
